FAERS Safety Report 13830728 (Version 1)
Quarter: 2017Q3

REPORT INFORMATION
  Report Type: Report from Study
  Country: ES (occurrence: ES)
  Receive Date: 20170803
  Receipt Date: 20170803
  Transmission Date: 20171127
  Serious: Yes (Other)
  Sender: FDA-Public Use
  Company Number: ES-MYLANLABS-2017M1047366

PATIENT

DRUGS (4)
  1. KETOROLAC [Suspect]
     Active Substance: KETOROLAC\KETOROLAC TROMETHAMINE
     Dosage: 4 MG (2 SPRAYS IN EACH NOSTRIL), SPRAY OF A SOLUTION OF KETOROLAC MIXED IN SALINE
     Route: 045
  2. KETOROLAC [Suspect]
     Active Substance: KETOROLAC\KETOROLAC TROMETHAMINE
     Dosage: 2 MG (1 SPRAY IN EACH NOSTRIL). SPRAY OF A SOLUTION OF KETOROLAC MIXED IN SALINE
     Route: 045
  3. KETOROLAC [Suspect]
     Active Substance: KETOROLAC\KETOROLAC TROMETHAMINE
     Indication: PRODUCT USED FOR UNKNOWN INDICATION
     Dosage: 1 MG (1 PUFF). SPRAY OF A SOLUTION OF KETOROLAC MIXED IN SALINE
     Route: 045
  4. KETOROLAC [Suspect]
     Active Substance: KETOROLAC\KETOROLAC TROMETHAMINE
     Dosage: 6 MG (3 SPRAYS IN EACH NOSTRIL), SPRAY OF A SOLUTION OF KETOROLAC MIXED IN SALINE
     Route: 045

REACTIONS (3)
  - Nasal disorder [Unknown]
  - Eye disorder [Unknown]
  - Asthma [Unknown]
